FAERS Safety Report 10485680 (Version 2)
Quarter: 2014Q4

REPORT INFORMATION
  Report Type: Report from Study
  Country: PE (occurrence: PE)
  Receive Date: 20141001
  Receipt Date: 20141028
  Transmission Date: 20150528
  Serious: Yes (Hospitalization)
  Sender: FDA-Public Use
  Company Number: PE-ROCHE-1468381

PATIENT
  Age: 70 Year
  Sex: Female

DRUGS (1)
  1. MABTHERA [Suspect]
     Active Substance: RITUXIMAB
     Indication: NON-HODGKIN^S LYMPHOMA
     Dosage: LAST APPLICATION OF RITUXIMAB ON 26/SEP/2014
     Route: 042
     Dates: start: 20140827

REACTIONS (3)
  - Respiratory disorder [Unknown]
  - Lymphadenopathy [Unknown]
  - Dysphagia [Unknown]

NARRATIVE: CASE EVENT DATE: 20140915
